FAERS Safety Report 5971422-2 (Version None)
Quarter: 2008Q4

REPORT INFORMATION
  Report Type: 
  Country: None (occurrence: None)
  Receive Date: 20081130
  Receipt Date: 20081124
  Transmission Date: 20090506
  Serious: Yes (Other)
  Sender: FDA-Public Use
  Company Number: KR-PFIZER INC-2008093816

PATIENT
  Sex: Female

DRUGS (3)
  1. LIPITOR [Suspect]
     Indication: TYPE IIA HYPERLIPIDAEMIA
     Route: 048
  2. NEURONTIN [Suspect]
     Route: 048
     Dates: start: 20080101
  3. OTHER DERMATOLOGICAL PREPARATIONS [Suspect]
     Dates: start: 20080101

REACTIONS (9)
  - DAYDREAMING [None]
  - DRY MOUTH [None]
  - FURUNCLE [None]
  - HEADACHE [None]
  - INCISION SITE COMPLICATION [None]
  - MEMORY IMPAIRMENT [None]
  - PAIN [None]
  - SKIN DISCOLOURATION [None]
  - SOMNOLENCE [None]
